FAERS Safety Report 6319400-8 (Version None)
Quarter: 2009Q3

REPORT INFORMATION
  Report Type: 
  Country: None (occurrence: None)
  Receive Date: 20090822
  Receipt Date: 20080826
  Transmission Date: 20100115
  Serious: No
  Sender: FDA-Public Use
  Company Number: US-ABBOTT-08P-163-0472623-00

PATIENT
  Sex: Female

DRUGS (7)
  1. NIASPAN [Suspect]
     Indication: HYPERCHOLESTEROLAEMIA
     Dosage: 1 TABLET X12 DAYS AT BEDTIME
     Route: 048
     Dates: start: 20080801
  2. NIASPAN [Suspect]
     Dosage: 2 TABLETS AT BEDTIME X12 DAYS
     Route: 048
  3. NIASPAN [Suspect]
     Dosage: 3 TABLETS AT BEDTIME X12 DAYS
     Route: 048
  4. NIASPAN [Suspect]
     Dosage: 4 TABLETS AT BEDTIME X12 DAYS
     Route: 048
  5. HYZAAR [Concomitant]
     Indication: DRUG USE FOR UNKNOWN INDICATION
     Dosage: 100/12.5 MG
     Route: 048
  6. CHLORD-CLIDI [Concomitant]
     Indication: DRUG USE FOR UNKNOWN INDICATION
     Dosage: 5/2.5 MG
  7. IBUPROFEN [Concomitant]
     Indication: DRUG USE FOR UNKNOWN INDICATION
     Route: 048

REACTIONS (2)
  - NIGHT SWEATS [None]
  - RASH PAPULAR [None]
